FAERS Safety Report 16113153 (Version 1)
Quarter: 2019Q1

REPORT INFORMATION
  Report Type: Spontaneous
  Country: CA (occurrence: CA)
  Receive Date: 20190325
  Receipt Date: 20190325
  Transmission Date: 20190418
  Serious: Yes (Other)
  Sender: FDA-Public Use
  Company Number: CA-PFIZER INC-2019121168

PATIENT
  Age: 53 Year
  Sex: Female
  Weight: 85 kg

DRUGS (7)
  1. D-TABS [Concomitant]
     Active Substance: CHOLECALCIFEROL
     Dosage: UNK
  2. OLMETEC [Concomitant]
     Active Substance: OLMESARTAN MEDOXOMIL
     Dosage: UNK
  3. PROMETRIUM [Concomitant]
     Active Substance: PROGESTERONE
     Dosage: UNK
  4. CALCIUM [Concomitant]
     Active Substance: CALCIUM
     Dosage: UNK
  5. ZOLOFT [Suspect]
     Active Substance: SERTRALINE HYDROCHLORIDE
     Indication: ELECTROCARDIOGRAM QT PROLONGED
     Dosage: 50 MG, 1X/DAY
     Route: 048
  6. ESTROGEL [Concomitant]
     Active Substance: ESTRADIOL
     Dosage: UNK
  7. RESTORIL [CHLORMEZANONE] [Concomitant]
     Active Substance: CHLORMEZANONE
     Dosage: UNK

REACTIONS (3)
  - Arrhythmia [Recovered/Resolved]
  - Bradycardia [Recovered/Resolved]
  - Drug ineffective for unapproved indication [Recovered/Resolved]
